FAERS Safety Report 17245701 (Version 1)
Quarter: 2020Q1

REPORT INFORMATION
  Report Type: Spontaneous
  Country: US (occurrence: US)
  Receive Date: 20200108
  Receipt Date: 20200108
  Transmission Date: 20200409
  Serious: No
  Sender: FDA-Public Use
  Company Number: US-UNITED THERAPEUTICS-UNT-2019-021797

PATIENT
  Age: 66 Year
  Sex: Female
  Weight: 64.4 kg

DRUGS (3)
  1. TADALAFIL. [Concomitant]
     Active Substance: TADALAFIL
     Indication: PRODUCT USED FOR UNKNOWN INDICATION
     Dosage: UNK
     Route: 065
  2. AMBRISENTAN [Concomitant]
     Active Substance: AMBRISENTAN
     Indication: PRODUCT USED FOR UNKNOWN INDICATION
     Dosage: UNK
     Route: 065
  3. REMODULIN [Suspect]
     Active Substance: TREPROSTINIL
     Indication: PULMONARY ARTERIAL HYPERTENSION
     Dosage: 0.01275 ?G/KG, CONTINUING
     Route: 058
     Dates: start: 20191113

REACTIONS (10)
  - Infusion site swelling [Unknown]
  - Dyspnoea [Unknown]
  - Malaise [Unknown]
  - Urinary retention [Unknown]
  - Vomiting [Unknown]
  - Nausea [Unknown]
  - Infusion site pain [Unknown]
  - Peripheral swelling [Not Recovered/Not Resolved]
  - Tremor [Unknown]
  - Device dislocation [Unknown]

NARRATIVE: CASE EVENT DATE: 2019
